FAERS Safety Report 20282712 (Version 1)
Quarter: 2022Q1

REPORT INFORMATION
  Report Type: Spontaneous
  Country: US (occurrence: None)
  Receive Date: 20220101
  Receipt Date: 20220101
  Transmission Date: 20220423
  Serious: Yes (Hospitalization)
  Sender: FDA-Public Use
  Company Number: None

PATIENT
  Age: 55 Year
  Sex: Male
  Weight: 82.55 kg

DRUGS (1)
  1. TRAMADOL HYDROCHLORIDE [Suspect]
     Active Substance: TRAMADOL HYDROCHLORIDE
     Indication: Pain
     Dosage: 100MG QID PO?
     Route: 048
     Dates: start: 20211008, end: 20211009

REACTIONS (4)
  - Sedation [None]
  - Seizure [None]
  - Tachypnoea [None]
  - Respiratory depression [None]

NARRATIVE: CASE EVENT DATE: 20211009
